FAERS Safety Report 12192373 (Version 1)
Quarter: 2016Q1

REPORT INFORMATION
  Report Type: Spontaneous
  Country: BR (occurrence: BR)
  Receive Date: 20160318
  Receipt Date: 20160318
  Transmission Date: 20160526
  Serious: Yes (Other)
  Sender: FDA-Public Use
  Company Number: PHHY2016BR036002

PATIENT
  Sex: Female

DRUGS (1)
  1. FORASEQ [Suspect]
     Active Substance: BUDESONIDE\FORMOTEROL FUMARATE
     Indication: ASTHMA
     Dosage: 1 DF (12/400 UG), UNK
     Route: 055

REACTIONS (2)
  - Pericardial effusion [Unknown]
  - Somnolence [Not Recovered/Not Resolved]
